FAERS Safety Report 9342482 (Version 2)
Quarter: 2013Q2

REPORT INFORMATION
  Report Type: Spontaneous
  Country: GB (occurrence: GB)
  Receive Date: 20130611
  Receipt Date: 20130624
  Transmission Date: 20140414
  Serious: Yes (Hospitalization)
  Sender: FDA-Public Use
  Company Number: GB-TEVA-410758ISR

PATIENT
  Age: 70 Year
  Sex: Male
  Weight: 66.95 kg

DRUGS (1)
  1. CO-AMOXICLAV [Suspect]
     Indication: APPENDICECTOMY
     Dates: start: 20130327

REACTIONS (3)
  - Renal impairment [Recovering/Resolving]
  - Cholestasis [Recovering/Resolving]
  - Jaundice [Unknown]
